FAERS Safety Report 5863253-9 (Version None)
Quarter: 2008Q3

REPORT INFORMATION
  Report Type: 
  Country: None (occurrence: None)
  Receive Date: 20080828
  Receipt Date: 20080819
  Transmission Date: 20090109
  Serious: Yes (Other)
  Sender: FDA-Public Use
  Company Number: US-ROCHE-582080

PATIENT
  Age: 51 Year
  Sex: Female

DRUGS (3)
  1. CAPECITABINE [Suspect]
     Dosage: DOSE INCREASED TO 1500 MG AM AND 1000 MG PM, ALSO TWO WEEKS ON AND ONE WEEK OFF
     Route: 065
     Dates: start: 20061201, end: 20070101
  2. CAPECITABINE [Suspect]
     Dosage: TWO WEEKS ON AND ONE WEEK OFF.
     Route: 065
     Dates: start: 20061001, end: 20061201
  3. BEVACIZUMAB [Suspect]
     Dosage: 15 MG/KG FOR 3 WEEKS FOR A TOTAL OF 8 DOSES
     Route: 065
     Dates: start: 20061201, end: 20070501

REACTIONS (1)
  - OSTEONECROSIS [None]
